FAERS Safety Report 18162944 (Version 1)
Quarter: 2020Q3

REPORT INFORMATION
  Report Type: Spontaneous
  Country: AT (occurrence: AT)
  Receive Date: 20200818
  Receipt Date: 20200818
  Transmission Date: 20201103
  Serious: Yes (Disabling, Other)
  Sender: FDA-Public Use
  Company Number: AT-ROCHE-2646275

PATIENT
  Age: 36 Year
  Sex: Female

DRUGS (2)
  1. OCREVUS [Suspect]
     Active Substance: OCRELIZUMAB
     Route: 042
     Dates: start: 20190703, end: 20200708
  2. OCREVUS [Suspect]
     Active Substance: OCRELIZUMAB
     Indication: RELAPSING-REMITTING MULTIPLE SCLEROSIS
     Route: 065
     Dates: start: 20190103, end: 20190118

REACTIONS (10)
  - Muscle spasms [Not Recovered/Not Resolved]
  - Dysaesthesia [Not Recovered/Not Resolved]
  - Muscular weakness [Not Recovered/Not Resolved]
  - Infusion related reaction [Unknown]
  - Conjunctival hyperaemia [Not Recovered/Not Resolved]
  - Multiple sclerosis relapse [Unknown]
  - Diplopia [Not Recovered/Not Resolved]
  - Eye disorder [Not Recovered/Not Resolved]
  - Disability [Unknown]
  - Ataxia [Not Recovered/Not Resolved]

NARRATIVE: CASE EVENT DATE: 20190507
